FAERS Safety Report 9906564 (Version 2)
Quarter: 2014Q1

REPORT INFORMATION
  Report Type: Spontaneous
  Country: IT (occurrence: IT)
  Receive Date: 20140218
  Receipt Date: 20140228
  Transmission Date: 20141002
  Serious: Yes (Other)
  Sender: FDA-Public Use
  Company Number: IT-ABBVIE-14P-083-1200122-00

PATIENT
  Age: 63 Year
  Sex: Male
  Weight: 146 kg

DRUGS (7)
  1. HUMIRA [Suspect]
     Indication: PRODUCT USED FOR UNKNOWN INDICATION
     Dates: start: 201106, end: 201301
  2. HUMIRA [Suspect]
     Dates: start: 201304, end: 201311
  3. CARDIOASPIRIN [Concomitant]
     Indication: PRODUCT USED FOR UNKNOWN INDICATION
  4. RAMIPRIL [Concomitant]
     Indication: PRODUCT USED FOR UNKNOWN INDICATION
  5. METOPROLOL [Concomitant]
     Indication: PRODUCT USED FOR UNKNOWN INDICATION
  6. METHOTREXATE [Concomitant]
     Indication: PRODUCT USED FOR UNKNOWN INDICATION
  7. FOLINA [Concomitant]
     Indication: PRODUCT USED FOR UNKNOWN INDICATION

REACTIONS (2)
  - Infarction [Unknown]
  - Pyrexia [Unknown]
